FAERS Safety Report 10547358 (Version 2)
Quarter: 2014Q4

REPORT INFORMATION
  Report Type: Report from Study
  Country: US (occurrence: US)
  Receive Date: 20141028
  Receipt Date: 20141028
  Transmission Date: 20150529
  Serious: No
  Sender: FDA-Public Use
  Company Number: US-AMGEN-USASP2014019829

PATIENT
  Age: 39 Year
  Sex: Female
  Weight: 82.54 kg

DRUGS (5)
  1. ENBREL [Suspect]
     Active Substance: ETANERCEPT
     Indication: ANKYLOSING SPONDYLITIS
     Dosage: 50 MG, QWK
     Route: 058
     Dates: start: 20140228, end: 201409
  2. CELEBREX [Concomitant]
     Active Substance: CELECOXIB
     Dosage: UNK
  3. ZOLOFT [Concomitant]
     Active Substance: SERTRALINE HYDROCHLORIDE
     Dosage: UNK
  4. FLEXERIL [Concomitant]
     Active Substance: CYCLOBENZAPRINE HYDROCHLORIDE
     Dosage: UNK
  5. LINZESS [Concomitant]
     Active Substance: LINACLOTIDE
     Dosage: UNK

REACTIONS (6)
  - Pain [Unknown]
  - Inflammation [Unknown]
  - Injection site bruising [Not Recovered/Not Resolved]
  - Drug ineffective [Unknown]
  - Injection site pain [Recovered/Resolved]
  - Injection site erythema [Not Recovered/Not Resolved]

NARRATIVE: CASE EVENT DATE: 20140228
